FAERS Safety Report 9441514 (Version 2)
Quarter: 2013Q3

REPORT INFORMATION
  Report Type: Spontaneous
  Country: IT (occurrence: IT)
  Receive Date: 20130805
  Receipt Date: 20130906
  Transmission Date: 20140515
  Serious: Yes (Hospitalization)
  Sender: FDA-Public Use
  Company Number: IT-MYLANLABS-2013S1016533

PATIENT
  Age: 40 Year
  Sex: Male

DRUGS (3)
  1. CARBIDOPA LEVODOPA [Suspect]
     Indication: PARKINSON^S DISEASE
     Dosage: CONTINUOUS MAINTENANCE DOSE 4.0 ML/H
  2. CARBIDOPA LEVODOPA [Suspect]
     Indication: PARKINSON^S DISEASE
     Dosage: EXTRA DOSES OF 2.0ML 2-3 TIMES DAILY
  3. CARBIDOPA LEVODOPA [Suspect]
     Indication: PARKINSON^S DISEASE
     Dosage: INCREASED EXTRA DOSES UP TO 2000 MG/DAY

REACTIONS (2)
  - Dopamine dysregulation syndrome [Unknown]
  - Drug abuse [Unknown]
